FAERS Safety Report 20493477 (Version 1)
Quarter: 2022Q1

REPORT INFORMATION
  Report Type: Spontaneous
  Country: AU (occurrence: AU)
  Receive Date: 20220220
  Receipt Date: 20220220
  Transmission Date: 20220423
  Serious: Yes (Other)
  Sender: FDA-Public Use
  Company Number: AU-ABBVIE-22K-008-4280733-00

PATIENT
  Age: 37 Year
  Sex: Female

DRUGS (8)
  1. EPILIM [Suspect]
     Active Substance: VALPROATE SODIUM
     Indication: Schizophrenia
     Route: 065
  2. EPILIM [Suspect]
     Active Substance: VALPROATE SODIUM
     Route: 065
  3. EPILIM [Suspect]
     Active Substance: VALPROATE SODIUM
     Route: 065
  4. LAMOTRIGINE [Suspect]
     Active Substance: LAMOTRIGINE
     Indication: Epilepsy
     Route: 065
  5. CLONAZEPAM [Suspect]
     Active Substance: CLONAZEPAM
     Indication: Restless legs syndrome
     Route: 065
  6. QUETIAPINE FUMARATE [Suspect]
     Active Substance: QUETIAPINE FUMARATE
     Indication: Product used for unknown indication
     Route: 065
  7. CLOMIPRAMINE HYDROCHLORIDE [Suspect]
     Active Substance: CLOMIPRAMINE HYDROCHLORIDE
     Indication: Epilepsy
     Route: 065
  8. ANAFRANIL [Suspect]
     Active Substance: CLOMIPRAMINE HYDROCHLORIDE
     Indication: Epilepsy
     Route: 065

REACTIONS (27)
  - Neutropenia [Unknown]
  - Overdose [Unknown]
  - Affect lability [Unknown]
  - Alanine aminotransferase increased [Unknown]
  - Anxiety [Unknown]
  - Blood cholesterol increased [Unknown]
  - Blood prolactin increased [Unknown]
  - Blood sodium decreased [Unknown]
  - Blood thyroid stimulating hormone increased [Unknown]
  - Blood urea decreased [Unknown]
  - Condition aggravated [Unknown]
  - Gamma-glutamyltransferase increased [Unknown]
  - Hallucination, auditory [Unknown]
  - Hallucination, visual [Unknown]
  - Mean cell haemoglobin concentration decreased [Unknown]
  - Myoclonus [Unknown]
  - Oedema peripheral [Unknown]
  - Persecutory delusion [Unknown]
  - Platelet count decreased [Unknown]
  - Rash [Unknown]
  - Red blood cell count decreased [Unknown]
  - Restless legs syndrome [Unknown]
  - Serum ferritin decreased [Unknown]
  - Thyroxine free decreased [Unknown]
  - Tic [Unknown]
  - Vitamin B12 decreased [Unknown]
  - White blood cell count decreased [Unknown]
